FAERS Safety Report 7676502-1 (Version None)
Quarter: 2011Q3

REPORT INFORMATION
  Report Type: 
  Country: None (occurrence: None)
  Receive Date: 20110805
  Receipt Date: 20110725
  Transmission Date: 20111222
  Serious: Yes (Death, Other)
  Sender: FDA-Public Use
  Company Number: US-ACCORD-010135

PATIENT
  Age: 44 Year
  Sex: Male

DRUGS (3)
  1. BLEOMYCIN SULFATE [Suspect]
     Indication: CHORIOCARCINOMA
  2. ETOPOSIDE [Suspect]
     Indication: CHORIOCARCINOMA
  3. CISPLATIN [Suspect]
     Indication: CHORIOCARCINOMA

REACTIONS (10)
  - DISSEMINATED INTRAVASCULAR COAGULATION [None]
  - TUMOUR LYSIS SYNDROME [None]
  - OFF LABEL USE [None]
  - RENAL FAILURE ACUTE [None]
  - METASTASES TO BONE MARROW [None]
  - RENAL TUBULAR NECROSIS [None]
  - PANCYTOPENIA [None]
  - METASTASES TO LIVER [None]
  - CLOSTRIDIAL INFECTION [None]
  - NEOPLASM PROGRESSION [None]
